FAERS Safety Report 7087004-8 (Version None)
Quarter: 2010Q4

REPORT INFORMATION
  Report Type: 
  Country: None (occurrence: None)
  Receive Date: 20101106
  Receipt Date: 20101025
  Transmission Date: 20110411
  Serious: No
  Sender: FDA-Public Use
  Company Number: US-WYE-H18342310

PATIENT
  Sex: Female

DRUGS (3)
  1. PRISTIQ [Suspect]
     Dosage: UNKNOWN DOSE
  2. PRISTIQ [Suspect]
     Dates: end: 20101001
  3. PRISTIQ [Suspect]
     Dates: start: 20101001

REACTIONS (1)
  - NAUSEA [None]
